FAERS Safety Report 6106638-8 (Version None)
Quarter: 2009Q1

REPORT INFORMATION
  Report Type: 
  Country: None (occurrence: None)
  Receive Date: 20090304
  Receipt Date: 20090219
  Transmission Date: 20090719
  Serious: Yes (Hospitalization)
  Sender: FDA-Public Use
  Company Number: 2009PL000055

PATIENT
  Age: 39 Year
  Sex: Female

DRUGS (1)
  1. ALLOPURINOL [Suspect]

REACTIONS (8)
  - DRUG RASH WITH EOSINOPHILIA AND SYSTEMIC SYMPTOMS [None]
  - EPSTEIN-BARR VIRUS ANTIBODY POSITIVE [None]
  - HUMAN HERPES VIRUS 6 SEROLOGY POSITIVE [None]
  - HYPERPYREXIA [None]
  - INFLUENZA [None]
  - MEASLES ANTIBODY POSITIVE [None]
  - RASH [None]
  - RUBELLA ANTIBODY POSITIVE [None]
